FAERS Safety Report 6109126-8 (Version None)
Quarter: 2009Q1

REPORT INFORMATION
  Report Type: 
  Country: None (occurrence: None)
  Receive Date: 20090306
  Receipt Date: 20090225
  Transmission Date: 20090719
  Serious: Yes (Hospitalization)
  Sender: FDA-Public Use
  Company Number: 2009-192244-NL

PATIENT
  Age: 86 Year
  Sex: Female

DRUGS (9)
  1. MIRTAZAPINE [Suspect]
     Dosage: 30 MG, ORAL
     Route: 048
  2. DIGOXIN [Suspect]
     Dosage: 0.5 DF, ORAL
     Route: 048
  3. PRAZEPAM [Suspect]
     Dosage: 30 MG, ORAL
     Route: 048
  4. LORMETAZEPAM [Suspect]
     Dosage: 2 MG
  5. BIPRETERAX [Suspect]
     Dosage: 1 DF, ORAL
     Route: 048
  6. ACETYLSALICYLATE LYSINE [Concomitant]
  7. MELAXOSE [Concomitant]
  8. PANTOPRAZOLE SODIUM [Concomitant]
  9. CUBENTYL [Concomitant]

REACTIONS (4)
  - ATRIAL FIBRILLATION [None]
  - BLOOD PRESSURE INCREASED [None]
  - FALL [None]
  - HEART SOUNDS ABNORMAL [None]
